FAERS Safety Report 4885639-1 (Version None)
Quarter: 2005Q4

REPORT INFORMATION
  Report Type: 
  Country: None (occurrence: None)
  Receive Date: 20051220
  Receipt Date: 20050930
  Transmission Date: 20060501
  Serious: Yes (Other)
  Sender: FDA-Public Use
  Company Number: HQWYE810803OCT05

PATIENT
  Age: 39 Year
  Sex: Female
  Weight: 50.85 kg

DRUGS (6)
  1. EFFEXOR XR [Suspect]
     Indication: DEPRESSION
     Dosage: SEE IMAGE
     Route: 048
     Dates: start: 20050923, end: 20050929
  2. EFFEXOR XR [Suspect]
     Indication: DEPRESSION
     Dosage: SEE IMAGE
     Route: 048
     Dates: start: 20050930, end: 20050930
  3. CALCIUM (CALCIUM) [Concomitant]
  4. XANAX [Concomitant]
  5. RESTORIL [Concomitant]
  6. VITAMINS (VITAMINS) [Concomitant]

REACTIONS (11)
  - ANOREXIA [None]
  - FEELING ABNORMAL [None]
  - FORMICATION [None]
  - INSOMNIA [None]
  - IRRITABILITY [None]
  - MANIA [None]
  - PANIC ATTACK [None]
  - PSYCHOMOTOR HYPERACTIVITY [None]
  - RHINALGIA [None]
  - SUICIDAL IDEATION [None]
  - VISION BLURRED [None]
